FAERS Safety Report 6055817-7 (Version None)
Quarter: 2009Q1

REPORT INFORMATION
  Report Type: 
  Country: None (occurrence: None)
  Receive Date: 20090126
  Receipt Date: 20090115
  Transmission Date: 20090719
  Serious: Yes (Other)
  Sender: FDA-Public Use
  Company Number: 2008JP005771

PATIENT
  Sex: Male

DRUGS (8)
  1. PROGRAF [Suspect]
     Indication: RHEUMATOID ARTHRITIS
     Dosage: 1.5 MG, ORAL
     Route: 048
     Dates: start: 20070629, end: 20071111
  2. VESICARE [Suspect]
     Dosage: 10 MG, ORAL
     Route: 048
     Dates: start: 20071101, end: 20071111
  3. MOBIC [Suspect]
     Dosage: 10 MG, ORAL
     Route: 048
     Dates: start: 20070410, end: 20071111
  4. FOSAMAX [Suspect]
     Dosage: 10 MG, ORAL
     Route: 048
     Dates: start: 20070706, end: 20071111
  5. PREDNISOLONE [Suspect]
     Dosage: 5 MG,
     Dates: start: 20061024
  6. URIEF(SILODOSIN) FORMULATION UNKNOWN [Suspect]
     Dosage: 8 MG,
     Dates: start: 20071101, end: 20071111
  7. YAKUBAN(FLURBIPROFEN) FORMULATION UNKNOWN [Suspect]
     Dates: start: 20070508, end: 20071111
  8. MYSER(DIFLUPREDNATE) FORMULAT [Suspect]
     Dates: start: 20070921, end: 20071111

REACTIONS (2)
  - CONDITION AGGRAVATED [None]
  - INTERSTITIAL LUNG DISEASE [None]
